FAERS Safety Report 7302253-9 (Version None)
Quarter: 2011Q1

REPORT INFORMATION
  Report Type: 
  Country: None (occurrence: None)
  Receive Date: 20110218
  Receipt Date: 20110207
  Transmission Date: 20110831
  Serious: Yes (Other)
  Sender: FDA-Public Use
  Company Number: PHHY2011CH09765

PATIENT
  Age: 65 Year
  Sex: Female

DRUGS (3)
  1. RIFAMPICIN [Suspect]
     Dosage: 600 MG ONCE DAILY
     Route: 048
  2. CEFTOBIPROLE [Suspect]
     Dosage: 500 MG I.V. THREE TIMES DAILY
  3. VANCOMYCIN [Suspect]
     Dosage: 01 G, BID
     Route: 042

REACTIONS (10)
  - CARDIAC VALVE VEGETATION [None]
  - RASH [None]
  - EOSINOPHILIA [None]
  - NEUTROPENIA [None]
  - PYREXIA [None]
  - C-REACTIVE PROTEIN INCREASED [None]
  - DRUG RASH WITH EOSINOPHILIA AND SYSTEMIC SYMPTOMS [None]
  - JAUNDICE [None]
  - FEBRILE NEUTROPENIA [None]
  - FATIGUE [None]
